FAERS Safety Report 4600338-9 (Version None)
Quarter: 2005Q1

REPORT INFORMATION
  Report Type: 
  Country: None (occurrence: None)
  Receive Date: 20050303
  Receipt Date: 20050303
  Transmission Date: 20050727
  Serious: Yes (Hospitalization)
  Sender: FDA-Public Use
  Company Number: None

PATIENT
  Age: 49 Year
  Sex: Male
  Weight: 92.0802 kg

DRUGS (4)
  1. CISPLATIN [Suspect]
     Indication: NASOPHARYNGEAL CANCER
     Dosage: 100 MG/M2 IV
     Route: 042
     Dates: start: 20020222
  2. CISPLATIN [Suspect]
     Indication: NASOPHARYNGEAL CANCER
     Dosage: 100 MG/M2 IV
     Route: 042
     Dates: start: 20050110
  3. CISPLATIN [Suspect]
     Indication: NASOPHARYNGEAL CANCER
     Dosage: 100 MG/M2 IV
     Route: 042
     Dates: start: 20050201
  4. RADIATION THERAPY [Concomitant]

REACTIONS (3)
  - POST PROCEDURAL NAUSEA [None]
  - POST PROCEDURAL VOMITING [None]
  - RENAL FAILURE [None]
